FAERS Safety Report 13034212 (Version 1)
Quarter: 2016Q4

REPORT INFORMATION
  Report Type: Spontaneous
  Country: US (occurrence: US)
  Receive Date: 20161215
  Receipt Date: 20161215
  Transmission Date: 20170207
  Serious: Yes (Other)
  Sender: FDA-Public Use
  Company Number: None

PATIENT
  Age: 38 Year
  Sex: Female
  Weight: 81 kg

DRUGS (2)
  1. ALBUMIN GRIFOLS [Suspect]
     Active Substance: ALBUMIN HUMAN
     Indication: HEART TRANSPLANT
     Dosage: ?          OTHER FREQUENCY:ONCE;?
     Route: 042
     Dates: start: 20161206, end: 20161206
  2. ALBUMIN GRIFOLS [Suspect]
     Active Substance: ALBUMIN HUMAN
     Indication: HEART TRANSPLANT
     Dosage: ?          OTHER FREQUENCY:ONCE;?
     Route: 042
     Dates: start: 20161205, end: 20161206

REACTIONS (4)
  - Hypotension [None]
  - Nausea [None]
  - Vomiting [None]
  - Chest pain [None]

NARRATIVE: CASE EVENT DATE: 20161206
